FAERS Safety Report 15437279 (Version 1)
Quarter: 2018Q3

REPORT INFORMATION
  Report Type: Spontaneous
  Country: US (occurrence: US)
  Receive Date: 20180927
  Receipt Date: 20180927
  Transmission Date: 20181010
  Serious: Yes (Hospitalization)
  Sender: FDA-Public Use
  Company Number: US-NOVOPROD-622874

PATIENT
  Age: 60 Year
  Sex: Female

DRUGS (5)
  1. NOVOLOG [Suspect]
     Active Substance: INSULIN ASPART
     Indication: TYPE 2 DIABETES MELLITUS
     Dosage: SLIDING SCALE EVERY 2 HOURS AT LOW TO MEDIUM DOSE SCALE
     Route: 058
     Dates: end: 201808
  2. LEVEMIR [Concomitant]
     Active Substance: INSULIN DETEMIR
     Dosage: 50 U, QD AT NIGHT
     Route: 058
     Dates: start: 201808, end: 2018
  3. LEVEMIR [Concomitant]
     Active Substance: INSULIN DETEMIR
     Dosage: 30 U, QD AT NIGHT
     Route: 058
     Dates: start: 2018
  4. NOVOLOG [Suspect]
     Active Substance: INSULIN ASPART
     Dosage: TITRATED UP TO ULTRA?HIGH DOSE EVERY 2 HOURS
     Route: 058
     Dates: start: 201808
  5. LEVEMIR [Concomitant]
     Active Substance: INSULIN DETEMIR
     Indication: TYPE 2 DIABETES MELLITUS
     Dosage: 30 U, QD AT NIGHT
     Route: 058
     Dates: end: 201808

REACTIONS (5)
  - Confusional state [Unknown]
  - Drug ineffective [Recovered/Resolved]
  - Blood glucose increased [Recovered/Resolved]
  - Product quality issue [Recovered/Resolved]
  - Aphasia [Unknown]

NARRATIVE: CASE EVENT DATE: 20180820
